FAERS Safety Report 21504573 (Version 3)
Quarter: 2023Q2

REPORT INFORMATION
  Report Type: Report from Study
  Country: US (occurrence: US)
  Receive Date: 20221025
  Receipt Date: 20230608
  Transmission Date: 20230721
  Serious: Yes (Hospitalization, Disabling, Other)
  Sender: FDA-Public Use
  Company Number: US-ABBVIE-4166023

PATIENT
  Sex: Female

DRUGS (1)
  1. PANCRELIPASE [Suspect]
     Active Substance: PANCRELIPASE
     Indication: Product used for unknown indication
     Dosage: FORM STRENGTH: 36000 UNIT
     Route: 048

REACTIONS (7)
  - Pancreatic cyst [Unknown]
  - Cholecystectomy [Unknown]
  - Hemiplegia [Unknown]
  - Secondary progressive multiple sclerosis [Unknown]
  - Heart rate abnormal [Unknown]
  - Mobility decreased [Unknown]
  - Weight decreased [Unknown]
